FAERS Safety Report 8554955-4 (Version None)
Quarter: 2012Q3

REPORT INFORMATION
  Report Type: 
  Country: None (occurrence: None)
  Receive Date: 20120731
  Receipt Date: 20120717
  Transmission Date: 20120928
  Serious: No
  Sender: FDA-Public Use
  Company Number: US-ASTRAZENECA-2012SE49815

PATIENT
  Age: 57 Year
  Sex: Female
  Weight: 59 kg

DRUGS (6)
  1. FLOVENT [Concomitant]
     Dosage: BID
     Route: 055
  2. VENTOLIN [Concomitant]
     Dosage: PRN
  3. AMITRIPTLINE HYDROCHLORIDE TAB [Concomitant]
  4. SYMBICORT [Suspect]
     Indication: ASTHMA
     Dosage: 320 MCGS TWO TIMES A DAY
     Route: 055
     Dates: start: 20100101
  5. LOVAZA [Concomitant]
     Indication: BLOOD TRIGLYCERIDES INCREASED
  6. LOVAZA [Concomitant]
     Indication: BLOOD CHOLESTEROL INCREASED

REACTIONS (3)
  - ASTHMA [None]
  - DRUG INEFFECTIVE [None]
  - OFF LABEL USE [None]
